FAERS Safety Report 9073693 (Version 1)
Quarter: 2013Q1

REPORT INFORMATION
  Report Type: Report from Study
  Country: US (occurrence: US)
  Receive Date: 20130129
  Receipt Date: 20130129
  Transmission Date: 20140127
  Serious: No
  Sender: FDA-Public Use
  Company Number: US-ABBOTT-12P-163-0925922-00

PATIENT
  Age: 22 Year
  Sex: Male

DRUGS (7)
  1. HUMIRA 40 MG/0.8 ML PEN [Suspect]
     Indication: CROHN^S DISEASE
     Dosage: LOADING DOSE
     Dates: start: 20120323
  2. OMEGA 3 6 9 [Concomitant]
     Indication: PRODUCT USED FOR UNKNOWN INDICATION
  3. VITAMINS SUCH AS MAGNESIUM AND MINERALS [Concomitant]
     Indication: PRODUCT USED FOR UNKNOWN INDICATION
  4. PURINE ANALOGUES [Concomitant]
     Indication: PRODUCT USED FOR UNKNOWN INDICATION
  5. PURINE ANALOGUES [Concomitant]
     Route: 048
  6. PURINE ANALOGUES [Concomitant]
     Route: 048
  7. PREDNISONE [Concomitant]
     Indication: PRODUCT USED FOR UNKNOWN INDICATION
     Dosage: DECREASING DOSE
     Dates: end: 20120412

REACTIONS (3)
  - Peripheral coldness [Not Recovered/Not Resolved]
  - Anxiety [Not Recovered/Not Resolved]
  - Herpes zoster [Unknown]
